FAERS Safety Report 5525347-7 (Version None)
Quarter: 2007Q4

REPORT INFORMATION
  Report Type: 
  Country: None (occurrence: None)
  Receive Date: 20071120
  Receipt Date: 20071030
  Transmission Date: 20080405
  Serious: No
  Sender: FDA-Public Use
  Company Number: US-1164492

PATIENT
  Sex: Female

DRUGS (7)
  1. NEVANAC [Suspect]
     Dosage: (OPHTHALMIC)
     Route: 047
     Dates: start: 20071017
  2. VIGAMOX [Suspect]
     Dosage: (OPHTHALMIC)
     Route: 047
     Dates: start: 20071017
  3. ATENOLOL [Concomitant]
  4. AMLODIPINE [Concomitant]
  5. NEXIUM [Concomitant]
  6. HYDROCHLORZIDE [Concomitant]
  7. LISINOPRIL [Concomitant]

REACTIONS (5)
  - BLOOD PRESSURE INCREASED [None]
  - DRY MOUTH [None]
  - HEART RATE INCREASED [None]
  - NERVOUSNESS [None]
  - PALPITATIONS [None]
